FAERS Safety Report 15231125 (Version 9)
Quarter: 2022Q2

REPORT INFORMATION
  Report Type: Other
  Country: CA (occurrence: None)
  Receive Date: 20180802
  Receipt Date: 20220523
  Transmission Date: 20220721
  Serious: Yes (Other)
  Sender: FDA-Public Use
  Company Number: CA-ROCHE-2132482

PATIENT
  Age: 31 Year
  Sex: Female

DRUGS (21)
  1. OCREVUS [Suspect]
     Active Substance: OCRELIZUMAB
     Indication: Relapsing-remitting multiple sclerosis
     Dosage: 300 MG DAY 0, DAY 14 THEN 600 MG Q6M. ;ONGOING: YES
     Route: 042
     Dates: start: 20180525
  2. SOLU-MEDROL [Suspect]
     Active Substance: METHYLPREDNISOLONE SODIUM SUCCINATE
     Indication: Premedication
     Route: 065
  3. TYLENOL [Concomitant]
     Active Substance: ACETAMINOPHEN
  4. ISOSORBIDE MONONITRATE [Concomitant]
     Active Substance: ISOSORBIDE MONONITRATE
  5. TIAZAC [Concomitant]
     Active Substance: DILTIAZEM HYDROCHLORIDE
  6. NADOLOL [Concomitant]
     Active Substance: NADOLOL
     Dates: start: 201903
  7. RAMIPRIL [Concomitant]
     Active Substance: RAMIPRIL
  8. DEXILANT [Concomitant]
     Active Substance: DEXLANSOPRAZOLE
  9. ASPIRIN [Concomitant]
     Active Substance: ASPIRIN
  10. TOPAMAX [Concomitant]
     Active Substance: TOPIRAMATE
  11. SYNTHROID [Concomitant]
     Active Substance: LEVOTHYROXINE SODIUM
  12. CELEBREX [Concomitant]
     Active Substance: CELECOXIB
  13. TYLENOL [Concomitant]
     Active Substance: ACETAMINOPHEN
  14. EZETIMIBE [Concomitant]
     Active Substance: EZETIMIBE
  15. ATORVASTATIN [Concomitant]
     Active Substance: ATORVASTATIN
  16. AVENTYL [Concomitant]
     Active Substance: NORTRIPTYLINE HYDROCHLORIDE
  17. NOVORAPID [Concomitant]
     Active Substance: INSULIN ASPART
  18. TRESIBA [Concomitant]
     Active Substance: INSULIN DEGLUDEC
  19. VICTOZA [Concomitant]
     Active Substance: LIRAGLUTIDE
     Dates: start: 201910
  20. CETIRIZINE HYDROCHLORIDE [Concomitant]
     Active Substance: CETIRIZINE HYDROCHLORIDE
  21. PLAQUENIL [Concomitant]
     Active Substance: HYDROXYCHLOROQUINE SULFATE

REACTIONS (12)
  - Hyperglycaemia [Recovered/Resolved]
  - Abscess limb [Recovering/Resolving]
  - Periarthritis [Recovering/Resolving]
  - Tendonitis [Recovering/Resolving]
  - Tooth abscess [Recovered/Resolved]
  - Abscess limb [Not Recovered/Not Resolved]
  - Vaginal infection [Recovering/Resolving]
  - Mouth ulceration [Recovered/Resolved]
  - Urinary tract infection [Recovered/Resolved]
  - Neuritis [Unknown]
  - Pharyngitis [Recovering/Resolving]
  - Gingival swelling [Not Recovered/Not Resolved]

NARRATIVE: CASE EVENT DATE: 20180525
